FAERS Safety Report 12564021 (Version 2)
Quarter: 2016Q3

REPORT INFORMATION
  Report Type: Spontaneous
  Country: US (occurrence: US)
  Receive Date: 20160718
  Receipt Date: 20160726
  Transmission Date: 20161109
  Serious: Yes (Other)
  Sender: FDA-Public Use
  Company Number: US-AUROBINDO-AUR-APL-2016-08928

PATIENT
  Age: 74 Year
  Sex: Male

DRUGS (1)
  1. LOSARTAN. [Suspect]
     Active Substance: LOSARTAN
     Indication: PRODUCT USED FOR UNKNOWN INDICATION
     Route: 065

REACTIONS (6)
  - Pemphigus [Unknown]
  - Skin plaque [Recovered/Resolved with Sequelae]
  - Mucosal inflammation [Unknown]
  - Mouth ulceration [Unknown]
  - Acantholysis [Unknown]
  - Oropharyngeal plaque [Unknown]
